FAERS Safety Report 18146187 (Version 1)
Quarter: 2020Q3

REPORT INFORMATION
  Report Type: Spontaneous
  Country: DE (occurrence: DE)
  Receive Date: 20200813
  Receipt Date: 20200813
  Transmission Date: 20201103
  Serious: Yes (Other)
  Sender: FDA-Public Use
  Company Number: DE-ANIPHARMA-2020-DE-000168

PATIENT
  Age: 52 Year
  Sex: Female
  Weight: 70 kg

DRUGS (7)
  1. VERAPAMIL [Suspect]
     Active Substance: VERAPAMIL HYDROCHLORIDE
     Route: 065
  2. DRONABINOL. [Suspect]
     Active Substance: DRONABINOL
     Route: 065
  3. PALEXIA [Suspect]
     Active Substance: TAPENTADOL HYDROCHLORIDE
     Dosage: 20 MG UNK
     Route: 048
     Dates: start: 202002, end: 20200720
  4. NO MATCH [Suspect]
     Active Substance: UNSPECIFIED INGREDIENT
     Dosage: 600 MG Q6MO
     Route: 042
     Dates: start: 201907
  5. OPIPRAMOL [Suspect]
     Active Substance: OPIPRAMOL
     Route: 065
  6. CANDESARTAN CILEXETIL. [Suspect]
     Active Substance: CANDESARTAN CILEXETIL
     Indication: PRODUCT USED FOR UNKNOWN INDICATION
     Route: 048
  7. DULOXETINE. [Suspect]
     Active Substance: DULOXETINE
     Dosage: 5.?30 MG QD
     Route: 048
     Dates: start: 201909, end: 202003

REACTIONS (2)
  - Drug-induced liver injury [Unknown]
  - Transaminases increased [Recovered/Resolved]

NARRATIVE: CASE EVENT DATE: 201910
